FAERS Safety Report 15230363 (Version 2)
Quarter: 2018Q4

REPORT INFORMATION
  Report Type: Spontaneous
  Country: US (occurrence: US)
  Receive Date: 20180802
  Receipt Date: 20181030
  Transmission Date: 20190204
  Serious: Yes (Hospitalization, Other)
  Sender: FDA-Public Use
  Company Number: US-009507513-1807USA012813

PATIENT
  Age: 76 Year
  Sex: Male
  Weight: 78.46 kg

DRUGS (2)
  1. KEYTRUDA [Suspect]
     Active Substance: PEMBROLIZUMAB
     Indication: ADRENAL GLAND CANCER
     Dosage: 200 MILLIGRAM
     Dates: start: 20180307, end: 2018
  2. HYDROCODONE [Concomitant]
     Active Substance: HYDROCODONE
     Indication: PAIN

REACTIONS (13)
  - Dyspnoea [Not Recovered/Not Resolved]
  - Product use in unapproved indication [Unknown]
  - Diplegia [Not Recovered/Not Resolved]
  - Multiple organ dysfunction syndrome [Not Recovered/Not Resolved]
  - Rash [Unknown]
  - Weight increased [Not Recovered/Not Resolved]
  - Product prescribing error [Unknown]
  - Burning sensation [Unknown]
  - Blood glucose increased [Unknown]
  - Gait inability [Not Recovered/Not Resolved]
  - Fluid retention [Not Recovered/Not Resolved]
  - Accidental overdose [Unknown]
  - Oedema peripheral [Not Recovered/Not Resolved]

NARRATIVE: CASE EVENT DATE: 2018
